FAERS Safety Report 8383700-0 (Version None)
Quarter: 2012Q2

REPORT INFORMATION
  Report Type: 
  Country: None (occurrence: None)
  Receive Date: 20120524
  Receipt Date: 20120509
  Transmission Date: 20120825
  Serious: Yes (Death, Hospitalization, Other)
  Sender: FDA-Public Use
  Company Number: JO-WATSON-2011-08151

PATIENT
  Age: 40 Year
  Sex: Female

DRUGS (4)
  1. VENLAFAXINE HYDROCHLORIDE [Suspect]
     Indication: DEPRESSION
     Dosage: 75 MG, DAILY
     Route: 065
  2. LAMOTRIGINE [Suspect]
     Indication: DEPRESSION
     Dosage: 100 MG, DAILY
     Route: 065
  3. MIRTAZAPINE [Suspect]
     Indication: DEPRESSION
     Dosage: 15 MG, DAILY
     Route: 065
  4. QUETIAPINE [Suspect]
     Indication: DEPRESSION
     Dosage: 300 MG, DAILY
     Route: 065

REACTIONS (10)
  - ORAL CANDIDIASIS [None]
  - CONVULSION [None]
  - CARDIAC ARREST [None]
  - ENTEROCOCCAL INFECTION [None]
  - SEPTIC SHOCK [None]
  - CELLULITIS [None]
  - ASPERGILLOSIS [None]
  - AGRANULOCYTOSIS [None]
  - NEUTROPENIA [None]
  - RESPIRATORY MONILIASIS [None]
